FAERS Safety Report 14345137 (Version 7)
Quarter: 2018Q1

REPORT INFORMATION
  Report Type: Spontaneous
  Country: CA (occurrence: CA)
  Receive Date: 20180103
  Receipt Date: 20180316
  Transmission Date: 20180509
  Serious: Yes (Hospitalization, Other)
  Sender: FDA-Public Use
  Company Number: CA-CELLTRION INC.-2017CA017384

PATIENT

DRUGS (16)
  1. INFLECTRA [Suspect]
     Active Substance: INFLIXIMAB-DYYB
     Dosage: 400 MG, THEN EVERY 6 WEEKS
     Route: 042
     Dates: start: 20171012
  2. INFLECTRA [Suspect]
     Active Substance: INFLIXIMAB-DYYB
     Dosage: 400 MG THEN EVERY 6 WEEKS
     Route: 065
     Dates: start: 20171202
  3. VITAMIN B12 [Concomitant]
     Active Substance: CYANOCOBALAMIN
     Dosage: UNK
  4. REACTINE                           /00884302/ [Concomitant]
     Active Substance: CETIRIZINE HYDROCHLORIDE
     Dosage: 10 MG, DAILY
  5. INFLECTRA [Suspect]
     Active Substance: INFLIXIMAB-DYYB
     Indication: COLITIS ULCERATIVE
     Dosage: 400 MG, THEN EVERY 6 WEEKS
     Route: 042
     Dates: start: 20170706, end: 20171207
  6. INFLECTRA [Suspect]
     Active Substance: INFLIXIMAB-DYYB
     Dosage: 300 MG, THEN EVERY 6 WEEKS
     Route: 065
     Dates: start: 20180118
  7. VITALUX                            /00322001/ [Concomitant]
     Dosage: UNK UNK, DAILY
  8. INFLECTRA [Suspect]
     Active Substance: INFLIXIMAB-DYYB
     Dosage: 400 MG, THEN EVERY 6 WEEKS
     Route: 065
     Dates: start: 20171202
  9. VITAMIN D                          /00107901/ [Concomitant]
     Active Substance: ERGOCALCIFEROL
     Dosage: 2 UNK, DAILY
  10. METOPROLOL. [Concomitant]
     Active Substance: METOPROLOL
     Dosage: 50 MG, BID, 1/2 TAB
  11. METAMUCIL [Concomitant]
     Active Substance: PLANTAGO SEED
     Dosage: UNK UNK, DAILY
  12. LANTUS [Concomitant]
     Active Substance: INSULIN GLARGINE
     Dosage: 4 UNITS AT BED TIME
  13. GABAPENTIN. [Concomitant]
     Active Substance: GABAPENTIN
     Dosage: 3 DF, TID
  14. IRON [Concomitant]
     Active Substance: IRON
     Dosage: 300 MG, DAILY
  15. TYLENOL EXTRA STRENGTH [Concomitant]
     Active Substance: ACETAMINOPHEN
     Dosage: 500 MG, 2 TABS EVERY 4 HOURS
  16. LOMOTIL [Concomitant]
     Active Substance: ATROPINE SULFATE\DIPHENOXYLATE HYDROCHLORIDE
     Dosage: .25 MG

REACTIONS (13)
  - Confusional state [Unknown]
  - Atelectasis [Unknown]
  - Catheter site inflammation [Unknown]
  - Arthralgia [Unknown]
  - Large intestine perforation [Unknown]
  - Pain [Unknown]
  - Weight decreased [Unknown]
  - Drug ineffective [Unknown]
  - Oxygen saturation decreased [Unknown]
  - Hypotension [Unknown]
  - Polyp [Unknown]
  - Arrhythmia [Unknown]
  - Catheter site erythema [Unknown]

NARRATIVE: CASE EVENT DATE: 201712
